FAERS Safety Report 22255679 (Version 1)
Quarter: 2023Q2

REPORT INFORMATION
  Report Type: Other
  Country: US (occurrence: None)
  Receive Date: 20230426
  Receipt Date: 20230426
  Transmission Date: 20230722
  Serious: Yes (Other)
  Sender: FDA-Public Use
  Company Number: US-ROCHE-3195025

PATIENT
  Age: 88 Year
  Sex: Female
  Weight: 56.750 kg

DRUGS (33)
  1. ACTEMRA [Suspect]
     Active Substance: TOCILIZUMAB
     Indication: Giant cell arteritis
     Route: 058
     Dates: start: 202203
  2. ACTEMRA [Suspect]
     Active Substance: TOCILIZUMAB
  3. ACTEMRA [Suspect]
     Active Substance: TOCILIZUMAB
     Dosage: INJECT 162MG (1 SYRINGE) SUBCUTANEOUSLY EVERY 2 WEEK(S)
     Route: 058
  4. ACTEMRA [Suspect]
     Active Substance: TOCILIZUMAB
  5. ACTEMRA [Suspect]
     Active Substance: TOCILIZUMAB
     Indication: Giant cell arteritis
     Route: 058
  6. ACTEMRA [Suspect]
     Active Substance: TOCILIZUMAB
  7. ACTEMRA [Suspect]
     Active Substance: TOCILIZUMAB
     Route: 058
     Dates: start: 2022
  8. ACTEMRA [Suspect]
     Active Substance: TOCILIZUMAB
  9. ACTEMRA [Suspect]
     Active Substance: TOCILIZUMAB
     Indication: Giant cell arteritis
     Route: 042
     Dates: start: 2022, end: 2022
  10. ACTEMRA [Suspect]
     Active Substance: TOCILIZUMAB
     Indication: Giant cell arteritis
     Route: 058
     Dates: start: 2022, end: 2022
  11. ACTEMRA [Suspect]
     Active Substance: TOCILIZUMAB
     Route: 058
  12. ACETAMINOPHEN [Concomitant]
     Active Substance: ACETAMINOPHEN
  13. ASPIRIN [Concomitant]
     Active Substance: ASPIRIN
  14. OSCAL [Concomitant]
     Active Substance: CALCIUM CARBONATE
     Dates: start: 20160826
  15. VOLTAREN [Concomitant]
     Active Substance: DICLOFENAC SODIUM
  16. PEPCID [Concomitant]
     Active Substance: FAMOTIDINE
  17. MOTRIN [Concomitant]
     Active Substance: IBUPROFEN
  18. ZESTRIL [Concomitant]
     Active Substance: LISINOPRIL
  19. ANTIVERT [Concomitant]
     Active Substance: MECLIZINE HYDROCHLORIDE
  20. DELTASONE [Concomitant]
     Active Substance: PREDNISONE
  21. MAXALT [Concomitant]
     Active Substance: RIZATRIPTAN BENZOATE
  22. ULTRAM [Concomitant]
     Active Substance: TRAMADOL HYDROCHLORIDE
  23. XARELTO [Concomitant]
     Active Substance: RIVAROXABAN
     Indication: Thrombosis
     Route: 048
     Dates: start: 2021
  24. PREDNISOLONE [Concomitant]
     Active Substance: PREDNISOLONE
  25. PREDNISONE [Concomitant]
     Active Substance: PREDNISONE
     Indication: Giant cell arteritis
     Route: 048
     Dates: start: 2016
  26. TUMS [Concomitant]
     Active Substance: CALCIUM CARBONATE
     Dates: start: 20170123
  27. CHOLECALCIFEROL [Concomitant]
     Active Substance: CHOLECALCIFEROL
     Dates: start: 20160826
  28. VITAMIN D3 [Concomitant]
     Active Substance: CHOLECALCIFEROL
     Dates: start: 20160830
  29. VOLTAREN OPHTHA CD [Concomitant]
     Dates: start: 20170424
  30. PEPCID [Concomitant]
     Active Substance: FAMOTIDINE
     Dates: start: 20170518
  31. LASIX [Concomitant]
     Active Substance: FUROSEMIDE
     Dates: start: 20210401
  32. PRINIVIL [Concomitant]
     Active Substance: LISINOPRIL
  33. MAXALT [Concomitant]
     Active Substance: RIZATRIPTAN BENZOATE
     Dates: start: 20141020

REACTIONS (9)
  - COVID-19 [Recovered/Resolved]
  - Cough [Unknown]
  - Dysphonia [Unknown]
  - Feeling abnormal [Unknown]
  - Headache [Recovering/Resolving]
  - Dry eye [Not Recovered/Not Resolved]
  - Eye contusion [Not Recovered/Not Resolved]
  - Pulmonary thrombosis [Unknown]
  - Atrial fibrillation [Unknown]

NARRATIVE: CASE EVENT DATE: 20221001
